FAERS Safety Report 9077146 (Version 1)
Quarter: 2013Q1

REPORT INFORMATION
  Report Type: Report from Study
  Country: US (occurrence: US)
  Receive Date: 20130129
  Receipt Date: 20130129
  Transmission Date: 20140127
  Serious: No
  Sender: FDA-Public Use
  Company Number: US-ABBOTT-12P-163-0948378-00

PATIENT
  Age: 56 Year
  Sex: Female

DRUGS (10)
  1. HUMIRA 40 MG/0.8 ML PEN [Suspect]
     Indication: RHEUMATOID ARTHRITIS
     Dates: start: 201205
  2. LAMICTAL [Concomitant]
     Indication: BIPOLAR DISORDER
  3. GEODON HCL [Concomitant]
     Indication: BIPOLAR DISORDER
     Dosage: 2 TABLETS AT BEDTIME
  4. GEODON HCL [Concomitant]
     Indication: BIPOLAR DISORDER
  5. PRISTIQ [Concomitant]
     Indication: BIPOLAR DISORDER
     Dosage: 2 TABLETS IN AM, 1 TABLET IN PM
  6. XANAX [Concomitant]
     Indication: ANXIETY
     Dosage: 4 TIMES A DAY AS NEEDED
  7. TRAMADOL [Concomitant]
     Indication: PAIN
     Dosage: 4 TIMES A DAY AS NEEDED
  8. LAMISIL [Concomitant]
     Indication: ONYCHOMYCOSIS
     Dosage: 250MG DAILY
  9. PREDNISONE [Concomitant]
     Indication: PRODUCT USED FOR UNKNOWN INDICATION
     Dosage: 5MG DAILY
  10. HYDROCODONE [Concomitant]
     Indication: PAIN
     Dosage: 2 TABLETS IN AM AND PM, 1 TABLET IN AFTERNOON AS NEEDED

REACTIONS (6)
  - Gait disturbance [Not Recovered/Not Resolved]
  - Drug ineffective [Not Recovered/Not Resolved]
  - Arthralgia [Not Recovered/Not Resolved]
  - Musculoskeletal stiffness [Not Recovered/Not Resolved]
  - Dental caries [Unknown]
  - Endodontic procedure [Unknown]
